FAERS Safety Report 24683881 (Version 2)
Quarter: 2024Q4

REPORT INFORMATION
  Report Type: Spontaneous
  Country: FR (occurrence: FR)
  Receive Date: 20241202
  Receipt Date: 20241230
  Transmission Date: 20250115
  Serious: Yes (Death, Congenital Anomaly, Other)
  Sender: CIPLA
  Company Number: FR-AFSSAPS-TO2024002077

PATIENT

DRUGS (4)
  1. RIVAROXABAN [Suspect]
     Active Substance: RIVAROXABAN
     Dosage: UNK
     Route: 064
     Dates: start: 20240424, end: 20240508
  2. LEVOTHYROXINE [Concomitant]
     Active Substance: LEVOTHYROXINE
     Dosage: UNK
     Route: 064
  3. INSULIN PORK\INSULIN PURIFIED PORK [Concomitant]
     Active Substance: INSULIN PORK\INSULIN PURIFIED PORK
     Dosage: UNK
     Route: 064
  4. INNOHEP [Concomitant]
     Active Substance: TINZAPARIN SODIUM
     Dosage: UNK
     Route: 064

REACTIONS (3)
  - Spina bifida [Fatal]
  - Arnold-Chiari malformation [Fatal]
  - Foot deformity [Fatal]

NARRATIVE: CASE EVENT DATE: 20240916
